FAERS Safety Report 9098761 (Version 1)
Quarter: 2013Q1

REPORT INFORMATION
  Report Type: Spontaneous
  Country: US (occurrence: US)
  Receive Date: 20130213
  Receipt Date: 20130213
  Transmission Date: 20140127
  Serious: No
  Sender: FDA-Public Use
  Company Number: US-BAYER-2013-008767

PATIENT
  Age: 40 Year
  Sex: Female

DRUGS (21)
  1. CIPRO [Suspect]
  2. GUAIFENESIN [Concomitant]
  3. IPRATROPIUM BROMIDE [Concomitant]
  4. PRAVASTATIN SODIUM [Concomitant]
  5. LEVEMIR [Concomitant]
  6. LYRICA [Concomitant]
     Dosage: 50 MG, TID
     Route: 048
  7. PULMICORT [Concomitant]
     Dosage: UNK
  8. WARFARIN SODIUM [Concomitant]
     Dosage: UNK
  9. AMITRIPTYLINE HCL [Concomitant]
     Dosage: UNK
  10. NEURONTIN [Concomitant]
     Dosage: UNK
  11. FUROSEMIDE [Concomitant]
     Dosage: UNK
  12. LISINOPRIL [Concomitant]
     Dosage: UNK
  13. NEXIUM [Concomitant]
     Dosage: UNK
  14. CLONAZEPAM [Concomitant]
     Dosage: UNK
  15. CITALOPRAM HYDROBROMIDE [Concomitant]
     Dosage: UNK
  16. CYCLOBENZAPRINE HYDROCHLORIDE [Concomitant]
     Dosage: UNK
  17. METFORMIN HCL [Concomitant]
     Dosage: UNK
  18. GLIPIZIDE [Concomitant]
     Dosage: UNK
  19. ALBUTEROL SULFATE [Concomitant]
     Dosage: UNK
  20. ALBUTEROL SULFATE [Concomitant]
  21. VITAMIN D [Concomitant]
     Dosage: UNK

REACTIONS (1)
  - Drug hypersensitivity [None]
